FAERS Safety Report 10240062 (Version 1)
Quarter: 2014Q2

REPORT INFORMATION
  Report Type: Spontaneous
  Country: US (occurrence: US)
  Receive Date: 20140617
  Receipt Date: 20140617
  Transmission Date: 20141212
  Serious: No
  Sender: FDA-Public Use
  Company Number: 2014SP001748

PATIENT
  Age: 16 Year
  Sex: Male
  Weight: 43.55 kg

DRUGS (16)
  1. DOXYCYCLINE [Suspect]
     Indication: PRODUCT USED FOR UNKNOWN INDICATION
  2. INSULIN [Concomitant]
  3. INSULIN GLARGINE [Concomitant]
  4. TACROLIMUS [Concomitant]
  5. CALCIFEROL CO [Concomitant]
  6. ERGOCALCIFEROL [Concomitant]
  7. LOSARTAN [Concomitant]
     Indication: BLOOD PRESSURE ABNORMAL
  8. HYDROCHLOROTHIAZIDE [Concomitant]
  9. CETIRIZINE HYDROCHLORIDE [Concomitant]
  10. PENTAMIDINE [Concomitant]
  11. ZOLEDRONIC ACID [Concomitant]
  12. BENADRYL /01563701/ [Concomitant]
  13. TRIAMTERENE [Concomitant]
  14. HYDROCORTISONE [Concomitant]
  15. CALCIUM CHLORIDE [Concomitant]
  16. PREDNISOLONE [Concomitant]

REACTIONS (1)
  - Drug ineffective [Unknown]
